FAERS Safety Report 6163575-0 (Version None)
Quarter: 2009Q2

REPORT INFORMATION
  Report Type: 
  Country: None (occurrence: None)
  Receive Date: 20090420
  Receipt Date: 20090407
  Transmission Date: 20091009
  Serious: Yes (Life-Threatening, Hospitalization)
  Sender: FDA-Public Use
  Company Number: DSA_33499_2009

PATIENT
  Sex: Female

DRUGS (5)
  1. DILTIAZEM HYDROCHLORIDE [Suspect]
     Indication: HYPERTENSION
     Dosage: (DF ORAL)
     Route: 048
     Dates: end: 20080214
  2. CORDARONE [Suspect]
     Indication: ATRIAL FIBRILLATION
     Dosage: (200 MG, FREQUENCY UNKNOWN ORAL)
     Route: 048
  3. LODOZ /01495201/ (LODOZ - BISOPROLOL + HYDROCHLOROTHIAZIDE) (NOT SPECI [Suspect]
     Indication: HYPERTENSION
     Dosage: (DF ORAL)
     Route: 048
     Dates: end: 20090214
  4. COAPROVEL [Concomitant]
  5. PREVISCAN /00789001/ [Concomitant]

REACTIONS (7)
  - BRADYCARDIA [None]
  - DEHYDRATION [None]
  - DIARRHOEA [None]
  - MALAISE [None]
  - MULTIPLE DRUG OVERDOSE [None]
  - RENAL FAILURE ACUTE [None]
  - SINUS ARRHYTHMIA [None]
